FAERS Safety Report 5470021-9 (Version None)
Quarter: 2007Q3

REPORT INFORMATION
  Report Type: 
  Country: None (occurrence: None)
  Receive Date: 20070927
  Receipt Date: 20070921
  Transmission Date: 20080115
  Serious: Yes (Hospitalization)
  Sender: FDA-Public Use
  Company Number: AU-SANOFI-SYNTHELABO-F01200701099

PATIENT
  Weight: 46 kg

DRUGS (15)
  1. CALTRATE [Concomitant]
     Indication: OSTEOPOROSIS
     Dosage: 1200 MG
     Route: 048
     Dates: start: 19870101
  2. VITAMIN CAP [Concomitant]
     Dosage: UNK
     Route: 048
     Dates: start: 19870101
  3. PANAMAX [Concomitant]
     Dosage: 3000 MG
     Route: 048
     Dates: start: 20070501
  4. OROXINE [Concomitant]
     Indication: HYPOTHYROIDISM
     Dosage: 0.05 MG
     Route: 048
     Dates: start: 20060101
  5. CHLORSIG [Concomitant]
     Indication: EPHELIDES
     Route: 061
     Dates: start: 19990101
  6. DIPROSONE [Concomitant]
     Indication: RASH
     Route: 061
     Dates: start: 19990101
  7. CELESTONE TAB [Concomitant]
     Indication: RASH
     Route: 061
     Dates: start: 19970101
  8. ALPHA KERI OIL [Concomitant]
     Indication: PRURITUS
     Route: 061
     Dates: start: 20070501
  9. ALPHA KERI LOTION [Concomitant]
     Indication: PRURITUS
     Route: 061
     Dates: start: 20070501
  10. UNKNOWN DRUG [Concomitant]
     Indication: ANAEMIA
     Route: 048
     Dates: start: 19870101
  11. GASTROSTOP [Concomitant]
     Indication: DIARRHOEA
     Dosage: 1-2 TABS
     Route: 048
     Dates: start: 20070901, end: 20070905
  12. FLUOROURACIL [Suspect]
     Route: 065
     Dates: start: 20070723, end: 20070905
  13. GEMCITABINE HCL [Suspect]
     Dosage: UNK
     Route: 065
  14. RADIOTHERAPY [Suspect]
     Dosage: 5400 GY
     Route: 065
     Dates: start: 20070723, end: 20070905
  15. OXALIPLATIN [Suspect]
     Indication: PANCREATIC CARCINOMA
     Dosage: UNK
     Route: 065

REACTIONS (3)
  - FATIGUE [None]
  - HYPOALBUMINAEMIA [None]
  - OEDEMA PERIPHERAL [None]
